FAERS Safety Report 9495551 (Version 1)
Quarter: 2013Q3

REPORT INFORMATION
  Report Type: Spontaneous
  Country: FR (occurrence: FR)
  Receive Date: 20130903
  Receipt Date: 20130903
  Transmission Date: 20140515
  Serious: Yes (Hospitalization)
  Sender: FDA-Public Use
  Company Number: FR-B.I. PHARMACEUTICALS,INC./RIDGEFIELD-2013-FF-02234FF

PATIENT
  Age: 62 Year
  Sex: Male
  Weight: 90 kg

DRUGS (2)
  1. PRADAXA [Suspect]
     Dosage: 110 MG
     Route: 048
     Dates: start: 201302, end: 20130704
  2. SOTALOL [Suspect]
     Route: 048
     Dates: start: 201302, end: 20130704

REACTIONS (2)
  - Rash morbilliform [Recovered/Resolved]
  - Purpura [Recovered/Resolved]
